FAERS Safety Report 7656907-5 (Version None)
Quarter: 2011Q3

REPORT INFORMATION
  Report Type: 
  Country: None (occurrence: None)
  Receive Date: 20110804
  Receipt Date: 20110722
  Transmission Date: 20111222
  Serious: Yes (Other)
  Sender: FDA-Public Use
  Company Number: BR-SANOFI-AVENTIS-2011SA048083

PATIENT
  Age: 74 Year
  Sex: Male
  Weight: 94 kg

DRUGS (5)
  1. LOSARTAN POTASSIUM [Concomitant]
  2. WARFARIN [Concomitant]
     Dosage: 5MG WEEKLY
  3. DRONEDARONE HCL [Suspect]
     Indication: ATRIAL FIBRILLATION
     Route: 048
     Dates: start: 20110530, end: 20110707
  4. FUROSEMIDE [Concomitant]
  5. CARVEDIOL [Concomitant]

REACTIONS (1)
  - CARDIAC FAILURE [None]
